FAERS Safety Report 5745907-8 (Version None)
Quarter: 2008Q2

REPORT INFORMATION
  Report Type: 
  Country: None (occurrence: None)
  Receive Date: 20080520
  Receipt Date: 20080502
  Transmission Date: 20081010
  Serious: Yes (Hospitalization)
  Sender: FDA-Public Use
  Company Number: 2008AL003330

PATIENT
  Age: 60 Year
  Sex: Male
  Weight: 78.4723 kg

DRUGS (6)
  1. DIGOXIN [Suspect]
     Indication: ATRIAL FIBRILLATION
     Dosage: 0.25-0.012 MG, PO
     Route: 048
  2. AMIODARONE HCL [Concomitant]
  3. STATIN [Concomitant]
  4. LIPITOR [Concomitant]
  5. TRICOR [Concomitant]
  6. COUMADIN [Concomitant]

REACTIONS (5)
  - ATRIAL FIBRILLATION [None]
  - CHEST PAIN [None]
  - CONDITION AGGRAVATED [None]
  - DYSPNOEA [None]
  - FEELING ABNORMAL [None]
